FAERS Safety Report 8353801-1 (Version None)
Quarter: 2012Q2

REPORT INFORMATION
  Report Type: 
  Country: None (occurrence: None)
  Receive Date: 20120511
  Receipt Date: 20111122
  Transmission Date: 20120825
  Serious: No
  Sender: FDA-Public Use
  Company Number: US-GLAXOSMITHKLINE-A0955562A

PATIENT
  Age: 55 Year
  Sex: Female
  Weight: 81.8 kg

DRUGS (7)
  1. TYKERB [Suspect]
     Indication: BREAST CANCER
     Dosage: 1250MG PER DAY
     Route: 065
     Dates: start: 20111116
  2. CLINDAMYCIN GEL [Concomitant]
     Indication: ADVERSE DRUG REACTION
     Route: 061
  3. CLOTRIMAZOLE [Concomitant]
  4. XELODA [Concomitant]
     Indication: BREAST CANCER
     Dosage: 1800MG TWICE PER DAY
     Route: 048
     Dates: start: 20111109, end: 20111123
  5. LEVOXYL [Concomitant]
     Dosage: 100MGD PER DAY
     Route: 048
  6. POTASSIUM CHLORIDE [Concomitant]
     Dosage: 20MGD PER DAY
  7. PEPCID [Concomitant]
     Dosage: 20MGD PER DAY

REACTIONS (1)
  - DIARRHOEA [None]
